FAERS Safety Report 5741248-3 (Version None)
Quarter: 2008Q2

REPORT INFORMATION
  Report Type: 
  Country: None (occurrence: None)
  Receive Date: 20080514
  Receipt Date: 20080408
  Transmission Date: 20081010
  Serious: Yes (Hospitalization, Other)
  Sender: FDA-Public Use
  Company Number: 200800021

PATIENT
  Age: 82 Year
  Sex: Female

DRUGS (2)
  1. SEPTOCAINE [Suspect]
     Indication: LOCAL ANAESTHESIA
     Dosage: PARENTERAL
     Route: 051
     Dates: start: 20070828
  2. SODIUM HYPOCHLORITE SOLUTION [Suspect]
     Indication: DENTAL CARE
     Dosage: DENTAL
     Route: 004
     Dates: start: 20070828

REACTIONS (4)
  - AGGRESSION [None]
  - SCREAMING [None]
  - SUBCUTANEOUS EMPHYSEMA [None]
  - SWELLING FACE [None]
